FAERS Safety Report 8308565 (Version 3)
Quarter: 2013Q1

REPORT INFORMATION
  Report Type: Report from Study
  Country: DE (occurrence: DE)
  Receive Date: 20111222
  Receipt Date: 20130319
  Transmission Date: 20140127
  Serious: Yes (Hospitalization)
  Sender: FDA-Public Use
  Company Number: DE-JNJFOC-20111205543

PATIENT
  Age: 24 Year
  Sex: Female
  Weight: 77 kg

DRUGS (6)
  1. REMICADE [Suspect]
     Indication: COLITIS ULCERATIVE
     Dosage: AT WEEK 2
     Route: 042
     Dates: start: 20110729
  2. REMICADE [Suspect]
     Indication: COLITIS ULCERATIVE
     Dosage: AT WEEK 4
     Route: 042
     Dates: end: 20110826
  3. REMICADE [Suspect]
     Indication: COLITIS ULCERATIVE
     Dosage: AT WEEK 0
     Route: 042
     Dates: start: 20110715
  4. PROGRAF [Concomitant]
     Indication: COLITIS ULCERATIVE
     Dosage: FREQUENCY ^6-0-6^
     Route: 065
     Dates: start: 201109, end: 201110
  5. BUSCOPAN [Concomitant]
     Indication: ABDOMINAL DISCOMFORT
     Dosage: AS NEEDED
     Route: 065
  6. PLEON [Concomitant]
     Indication: COLITIS ULCERATIVE
     Route: 065
     Dates: start: 201105, end: 20111116

REACTIONS (1)
  - Colitis ulcerative [Recovered/Resolved]
